FAERS Safety Report 23306747 (Version 1)
Quarter: 2023Q4

REPORT INFORMATION
  Report Type: Spontaneous
  Country: US (occurrence: US)
  Receive Date: 20231218
  Receipt Date: 20231218
  Transmission Date: 20240110
  Serious: No
  Sender: FDA-Public Use
  Company Number: US-RECKITT BENCKISER HEALTHCARE INT LIMITED-RB-105886-2023

PATIENT
  Sex: Male

DRUGS (1)
  1. DELSYM NIGHTTIME COUGH [Suspect]
     Active Substance: ACETAMINOPHEN\DEXTROMETHORPHAN HYDROBROMIDE\TRIPROLIDINE HYDROCHLORIDE
     Indication: Cough
     Dosage: SINGLE
     Route: 048
     Dates: start: 20230830, end: 20230830

REACTIONS (1)
  - Dyspnoea [Recovered/Resolved]
